FAERS Safety Report 6753325-9 (Version None)
Quarter: 2010Q2

REPORT INFORMATION
  Report Type: 
  Country: None (occurrence: None)
  Receive Date: 20100520
  Receipt Date: 20100429
  Transmission Date: 20101027
  Serious: Yes (Other)
  Sender: FDA-Public Use
  Company Number: 2009206991

PATIENT
  Age: 58 Year
  Sex: Female
  Weight: 61 kg

DRUGS (4)
  1. PROVERA [Suspect]
     Indication: HORMONE REPLACEMENT THERAPY
     Route: 048
     Dates: start: 19981008, end: 19991009
  2. PREMARIN (ESTROGENS CONGATED [Suspect]
     Indication: HORMONE REPLACEMENT THERAPY
     Route: 048
  3. ARTHROTEC (DICLOFENAC SODIUM, MISOROSTOL) [Concomitant]
  4. DIAZEPAM [Concomitant]

REACTIONS (1)
  - BREAST CANCER [None]
